FAERS Safety Report 7443633-0 (Version None)
Quarter: 2011Q2

REPORT INFORMATION
  Report Type: 
  Country: None (occurrence: None)
  Receive Date: 20110428
  Receipt Date: 20110420
  Transmission Date: 20111010
  Serious: Yes (Life-Threatening, Hospitalization)
  Sender: FDA-Public Use
  Company Number: FR-ROCHE-770328

PATIENT
  Sex: Female

DRUGS (6)
  1. POLARAMINE [Concomitant]
  2. BEVACIZUMAB [Suspect]
     Dosage: PERMANENTLY DISCONTINUED
     Route: 065
     Dates: start: 20101229, end: 20110324
  3. SOLU-MEDROL [Concomitant]
  4. PACLITAXEL [Suspect]
     Dosage: PERMANENTLY DISCONTINUED.
     Route: 065
     Dates: start: 20101229, end: 20110331
  5. ZANTAC [Concomitant]
  6. CAPECITABINE [Suspect]
     Dosage: PERMANENTLY DISCONTINUED.
     Route: 065
     Dates: start: 20101229, end: 20110401

REACTIONS (5)
  - HEADACHE [None]
  - METASTASES TO MENINGES [None]
  - VOMITING [None]
  - DIZZINESS [None]
  - INTRACRANIAL PRESSURE INCREASED [None]
